FAERS Safety Report 4320047-3 (Version None)
Quarter: 2004Q1

REPORT INFORMATION
  Report Type: 
  Country: None (occurrence: None)
  Receive Date: 20040316
  Receipt Date: 20040308
  Transmission Date: 20041129
  Serious: Yes (Other)
  Sender: FDA-Public Use
  Company Number: USA-2004-0013630

PATIENT
  Sex: Male

DRUGS (3)
  1. OXYCONTIN [Suspect]
  2. XANAX [Suspect]
  3. NEURONTIN [Suspect]

REACTIONS (3)
  - AGGRESSION [None]
  - ANXIETY [None]
  - THINKING ABNORMAL [None]
